FAERS Safety Report 24528340 (Version 1)
Quarter: 2024Q4

REPORT INFORMATION
  Report Type: Spontaneous
  Country: US (occurrence: None)
  Receive Date: 20241018
  Receipt Date: 20241018
  Transmission Date: 20250115
  Serious: Yes (Hospitalization)
  Sender: Public
  Company Number: None

PATIENT
  Age: 73 Year
  Sex: Male
  Weight: 57 kg

DRUGS (2)
  1. WARFARIN SODIUM [Suspect]
     Active Substance: WARFARIN SODIUM
     Indication: Aortic valve replacement
     Dosage: FREQUENCY : AT BEDTIME;?
     Route: 048
     Dates: start: 20150603, end: 20240324
  2. WARFARIN SODIUM [Suspect]
     Active Substance: WARFARIN SODIUM
     Indication: Cardiac valve prosthesis user

REACTIONS (3)
  - Calciphylaxis [None]
  - Wound [None]
  - Impaired healing [None]

NARRATIVE: CASE EVENT DATE: 20240329
